FAERS Safety Report 18221611 (Version 3)
Quarter: 2020Q3

REPORT INFORMATION
  Report Type: Spontaneous
  Country: US (occurrence: US)
  Receive Date: 20200902
  Receipt Date: 20200922
  Transmission Date: 20201103
  Serious: Yes (Hospitalization, Other)
  Sender: FDA-Public Use
  Company Number: US-DRREDDYS-USA/USA/20/0126308

PATIENT
  Age: 38 Year
  Sex: Female

DRUGS (7)
  1. CARIPRAZINE [Suspect]
     Active Substance: CARIPRAZINE
     Indication: BIPOLAR I DISORDER
     Route: 048
     Dates: start: 201609, end: 201610
  2. ARIPIPRAZOLE. [Suspect]
     Active Substance: ARIPIPRAZOLE
     Indication: BIPOLAR I DISORDER
  3. PALIPERIDONE. [Suspect]
     Active Substance: PALIPERIDONE
     Indication: BIPOLAR I DISORDER
     Route: 030
  4. RISPERIDONE. [Suspect]
     Active Substance: RISPERIDONE
     Indication: BIPOLAR I DISORDER
     Dates: start: 201609, end: 201610
  5. ZIPRASIDONE. [Suspect]
     Active Substance: ZIPRASIDONE
     Route: 048
     Dates: start: 20181209, end: 20181215
  6. QUETIAPINE. [Suspect]
     Active Substance: QUETIAPINE
     Indication: BIPOLAR I DISORDER
     Route: 048
     Dates: start: 201609, end: 201610
  7. ZIPRASIDONE. [Suspect]
     Active Substance: ZIPRASIDONE
     Indication: BIPOLAR I DISORDER
     Route: 048
     Dates: start: 20151209, end: 20181215

REACTIONS (13)
  - Hyperkinesia [Recovering/Resolving]
  - Condition aggravated [Recovering/Resolving]
  - Tremor [Recovering/Resolving]
  - Cerebrovascular arteriovenous malformation [Unknown]
  - Tardive dyskinesia [Recovering/Resolving]
  - Akathisia [Recovering/Resolving]
  - Anaemia [Recovering/Resolving]
  - Dyskinesia [Recovering/Resolving]
  - Subarachnoid haemorrhage [Unknown]
  - Athetosis [Recovering/Resolving]
  - Protrusion tongue [Recovering/Resolving]
  - Cerebellar haemorrhage [Unknown]
  - Dysphagia [Recovering/Resolving]

NARRATIVE: CASE EVENT DATE: 201811
